FAERS Safety Report 22172189 (Version 1)
Quarter: 2023Q2

REPORT INFORMATION
  Report Type: Spontaneous
  Country: CN (occurrence: None)
  Receive Date: 20230404
  Receipt Date: 20230404
  Transmission Date: 20230722
  Serious: Yes (Hospitalization, Other)
  Sender: FDA-Public Use
  Company Number: 2023A073901

PATIENT
  Age: 65 Year
  Sex: Female

DRUGS (1)
  1. DAPAGLIFLOZIN [Suspect]
     Active Substance: DAPAGLIFLOZIN
     Indication: Diabetes mellitus
     Route: 048
     Dates: start: 20230215, end: 20230324

REACTIONS (2)
  - Urosepsis [Recovering/Resolving]
  - Escherichia sepsis [Recovering/Resolving]

NARRATIVE: CASE EVENT DATE: 20230323
